FAERS Safety Report 8447388-2 (Version None)
Quarter: 2012Q2

REPORT INFORMATION
  Report Type: 
  Country: None (occurrence: None)
  Receive Date: 20120619
  Receipt Date: 20120618
  Transmission Date: 20120825
  Serious: Yes (Hospitalization)
  Sender: FDA-Public Use
  Company Number: PHHO2011NL06785

PATIENT
  Sex: Male
  Weight: 82 kg

DRUGS (3)
  1. BLINDED NO TREATMENT RECEIVED [Suspect]
     Indication: TUBEROUS SCLEROSIS
     Dosage: CODE NOT BROKEN
     Route: 048
     Dates: start: 20100826
  2. PLACEBO [Suspect]
     Indication: TUBEROUS SCLEROSIS
     Dosage: CODE NOT BROKEN
     Route: 048
     Dates: start: 20100826
  3. AFINITOR [Suspect]
     Indication: TUBEROUS SCLEROSIS
     Dosage: CODE NOT BROKEN
     Route: 048
     Dates: start: 20100826

REACTIONS (1)
  - APPENDICITIS [None]
